FAERS Safety Report 7058364-9 (Version None)
Quarter: 2010Q4

REPORT INFORMATION
  Report Type: 
  Country: None (occurrence: None)
  Receive Date: 20101022
  Receipt Date: 20101014
  Transmission Date: 20110411
  Serious: No
  Sender: FDA-Public Use
  Company Number: US-PFIZER INC-2010131325

PATIENT
  Sex: Male
  Weight: 68.027 kg

DRUGS (1)
  1. VIAGRA [Suspect]
     Dosage: 100 MG, AS NEEDED

REACTIONS (1)
  - DRUG EFFECT DECREASED [None]
